FAERS Safety Report 8772006 (Version 1)
Quarter: 2012Q4

REPORT INFORMATION
  Report Type: Report from Study
  Country: CH (occurrence: CH)
  Receive Date: 20120905
  Receipt Date: 20120905
  Transmission Date: 20130627
  Serious: Yes (Hospitalization)
  Sender: FDA-Public Use
  Company Number: PHHO2012CH012751

PATIENT
  Age: 64 Year
  Sex: Male

DRUGS (2)
  1. EVEROLIMUS [Suspect]
     Indication: HEPATIC NEOPLASM MALIGNANT
     Dosage: 5 mg, UNK
     Route: 048
     Dates: start: 20120725, end: 20120830
  2. SORAFENIB [Suspect]
     Indication: HEPATIC NEOPLASM MALIGNANT
     Dosage: 400 mg, UNK
     Route: 048
     Dates: start: 20120817, end: 20120825

REACTIONS (2)
  - General physical health deterioration [Unknown]
  - Dehydration [Unknown]
